FAERS Safety Report 25599045 (Version 2)
Quarter: 2025Q3

REPORT INFORMATION
  Report Type: Spontaneous
  Country: BR (occurrence: BR)
  Receive Date: 20250724
  Receipt Date: 20250902
  Transmission Date: 20251021
  Serious: Yes (Other)
  Sender: NOVARTIS
  Company Number: BR-002147023-NVSC2025BR116927

PATIENT
  Age: 72 Year
  Sex: Female
  Weight: 63 kg

DRUGS (8)
  1. KISQALI [Suspect]
     Active Substance: RIBOCICLIB SUCCINATE
     Indication: Breast cancer
     Dosage: 3 DOSAGE FORM, QD (7 DAYS BREAK)
     Route: 048
     Dates: start: 202308
  2. PANTOPRAZOLE [Suspect]
     Active Substance: PANTOPRAZOLE
     Indication: Abdominal pain upper
     Dosage: 1 DOSAGE FORM, QD (IN  PROGRESS)
     Route: 048
     Dates: start: 202308
  3. NYSTATIN [Concomitant]
     Active Substance: NYSTATIN
     Indication: Product used for unknown indication
     Route: 065
  4. HYDROCORTISONE [Concomitant]
     Active Substance: HYDROCORTISONE
     Indication: Product used for unknown indication
     Route: 065
  5. VITAMIN E [Concomitant]
     Active Substance: .ALPHA.-TOCOPHEROL
     Indication: Product used for unknown indication
     Route: 065
  6. Saliva [Concomitant]
     Indication: Product used for unknown indication
     Route: 065
  7. CALCIUM [Concomitant]
     Active Substance: CALCIUM
     Indication: Bone pain
     Dosage: 2 DOSAGE FORM, QD (2 TABLETS - 1X A DAY, BEFORE  KISQALI  ALREADY  USED, IN  PROGRESS)
     Route: 048
  8. Dexfer [Concomitant]
     Indication: Blood iron
     Dosage: 2 DOSAGE FORM, QD (IN  PROGRESS)
     Route: 048
     Dates: start: 202309

REACTIONS (2)
  - Immunodeficiency [Unknown]
  - Tongue ulceration [Not Recovered/Not Resolved]

NARRATIVE: CASE EVENT DATE: 20250101
